FAERS Safety Report 8666309 (Version 2)
Quarter: 2012Q4

REPORT INFORMATION
  Report Type: Report from Study
  Country: JP (occurrence: JP)
  Receive Date: 20120716
  Receipt Date: 20121114
  Transmission Date: 20130627
  Serious: Yes (Other)
  Sender: FDA-Public Use
  Company Number: PHHY2012JP059967

PATIENT
  Age: 49 Year
  Sex: Female

DRUGS (4)
  1. FTY 720 [Suspect]
     Dosage: 0.5 mg, daily
     Route: 048
     Dates: start: 20120228
  2. LENDORMIN [Concomitant]
     Dosage: UNK UKN, UNK
  3. ZANTAC [Concomitant]
     Dosage: UNK UKN, UNK
  4. SENNOSIDE [Concomitant]
     Dosage: UNK UKN, UNK

REACTIONS (4)
  - Intraductal proliferative breast lesion [Recovered/Resolved]
  - Breast mass [Not Recovered/Not Resolved]
  - White blood cell count decreased [Recovered/Resolved]
  - Lymphocyte count decreased [Unknown]
